FAERS Safety Report 18370033 (Version 1)
Quarter: 2020Q4

REPORT INFORMATION
  Report Type: Spontaneous
  Country: SE (occurrence: SE)
  Receive Date: 20201012
  Receipt Date: 20201012
  Transmission Date: 20210114
  Serious: Yes (Death)
  Sender: FDA-Public Use
  Company Number: SE-CPL-001980

PATIENT
  Age: 82 Year
  Sex: Female

DRUGS (10)
  1. BISOPROLOL [Concomitant]
     Active Substance: BISOPROLOL
     Dates: end: 20200705
  2. DONEPEZIL. [Suspect]
     Active Substance: DONEPEZIL
     Indication: DEMENTIA
     Dosage: 10MG 0+1
     Route: 048
     Dates: end: 20200714
  3. ATORBIR [Concomitant]
     Active Substance: ATORVASTATIN
     Dates: end: 20200725
  4. ISOPTIN [Concomitant]
     Active Substance: VERAPAMIL HYDROCHLORIDE
     Dates: end: 20200715
  5. DIGOXIN. [Concomitant]
     Active Substance: DIGOXIN
     Dates: end: 20200714
  6. PARACETAMOL [Concomitant]
     Active Substance: ACETAMINOPHEN
     Dates: end: 202007
  7. FOLACIN [Concomitant]
     Dates: end: 20200715
  8. BETOLVIDON [Concomitant]
     Active Substance: CYANOCOBALAMIN
     Dates: end: 20200715
  9. LEVAXIN [Concomitant]
     Active Substance: LEVOTHYROXINE SODIUM
     Dates: end: 20200725
  10. WARAN [Concomitant]
     Active Substance: WARFARIN SODIUM
     Dates: end: 20200704

REACTIONS (1)
  - Hepatic cirrhosis [Fatal]

NARRATIVE: CASE EVENT DATE: 20200705
